FAERS Safety Report 8157532-2 (Version None)
Quarter: 2012Q1

REPORT INFORMATION
  Report Type: 
  Country: None (occurrence: None)
  Receive Date: 20120222
  Receipt Date: 20120207
  Transmission Date: 20120608
  Serious: Yes (Other)
  Sender: FDA-Public Use
  Company Number: US-PFIZER INC-2012032295

PATIENT
  Age: 76 Year
  Sex: Male
  Weight: 82.2 kg

DRUGS (5)
  1. BENDAMUSTINE [Suspect]
     Indication: MANTLE CELL LYMPHOMA
     Dosage: UNK
     Dates: start: 20111021, end: 20111022
  2. TORISEL [Suspect]
     Indication: MANTLE CELL LYMPHOMA
     Dosage: 25 MG, DAYS 1, 8, 15
     Dates: start: 20110606, end: 20110927
  3. CLADRIBINE [Suspect]
     Indication: MANTLE CELL LYMPHOMA
     Dosage: 5 MG/M2/DAY, DAYS 1, 2, 3, 4, 5
     Dates: start: 20110606, end: 20110917
  4. RITUXIMAB [Suspect]
     Dosage: UNK
     Dates: start: 20111021
  5. RITUXIMAB [Suspect]
     Indication: MANTLE CELL LYMPHOMA
     Dosage: 375 MG/M2/DAY, CYCLE 1 ONLY, DAYS 1 AND 2; SUBSEQUENT CYCLES, DAY 1
     Dates: start: 20110606, end: 20110913

REACTIONS (1)
  - MYELODYSPLASTIC SYNDROME [None]
